FAERS Safety Report 7284290-6 (Version None)
Quarter: 2011Q1

REPORT INFORMATION
  Report Type: 
  Country: None (occurrence: None)
  Receive Date: 20110209
  Receipt Date: 20110131
  Transmission Date: 20110831
  Serious: Yes (Life-Threatening, Hospitalization)
  Sender: FDA-Public Use
  Company Number: JP-ASTRAZENECA-2011SE06721

PATIENT
  Age: 87 Year
  Sex: Female

DRUGS (8)
  1. LOVASTATIN [Suspect]
     Indication: DYSLIPIDAEMIA
     Route: 048
     Dates: start: 19900101, end: 20101101
  2. DIANBEN 850 MG COMPRIMIDOS RECUBIERTOS CON PELICULA, 50 COMPRIMIDOS [Concomitant]
     Indication: DIABETES MELLITUS
     Route: 048
     Dates: start: 20040101, end: 20101101
  3. MANIDON HTA COMPRIMIDOS DE LIBERACTION PROLONGADA, 30 COMPRIMIDOS [Concomitant]
     Indication: HYPERTENSION
     Route: 048
     Dates: start: 20080101, end: 20101101
  4. LEVOTHROID 100 MICROGRAMOS COMPRIMIDOS, 50 COMPRIMIDOS [Concomitant]
     Indication: HYPOTHYROIDISM
     Route: 048
     Dates: start: 19700101
  5. SUTRIL 10 MG COMPRIMIDOS, 30 COMPRIMIDOS [Concomitant]
     Indication: HYPERTENSION
     Route: 048
     Dates: start: 20080101, end: 20101101
  6. PARAPRES 32 MG COMPRIMIDOS [Interacting]
     Indication: HYPERTENSION
     Route: 048
     Dates: start: 20091101, end: 20101101
  7. ALDACTONE [Interacting]
     Indication: HYPERTENSION
     Route: 048
     Dates: start: 20070101, end: 20101101
  8. ADIRO 100 MG COMPRIMIDOS RECUBIERTOS, 30 COMPRIMIDOS [Concomitant]
     Indication: MYOCARDIAL ISCHAEMIA
     Route: 048
     Dates: start: 19920101, end: 20101101

REACTIONS (2)
  - CARDIO-RESPIRATORY ARREST [None]
  - HYPERKALAEMIA [None]
